FAERS Safety Report 7399264-4 (Version None)
Quarter: 2011Q2

REPORT INFORMATION
  Report Type: 
  Country: None (occurrence: None)
  Receive Date: 20110407
  Receipt Date: 20110315
  Transmission Date: 20111010
  Serious: Yes (Death, Hospitalization)
  Sender: FDA-Public Use
  Company Number: US-KINGPHARMUSA00001-K201100277

PATIENT
  Sex: Female
  Weight: 39.456 kg

DRUGS (5)
  1. DILAUDID [Suspect]
     Dosage: UNK
  2. OXYQUINOLINE SULFATE [Suspect]
     Dosage: UNK
  3. LEVAQUIN [Suspect]
     Dosage: UNK
     Dates: start: 20100810
  4. AVINZA [Suspect]
     Dosage: UNK
  5. ZOSYN [Suspect]
     Dosage: 500 MG, UNK
     Dates: start: 20100808

REACTIONS (23)
  - DEATH [None]
  - PULMONARY EMBOLISM [None]
  - VAGINAL HAEMORRHAGE [None]
  - LUNG DISORDER [None]
  - CONTUSION [None]
  - MUSCULAR WEAKNESS [None]
  - BEDRIDDEN [None]
  - SWELLING [None]
  - MOANING [None]
  - GRIEF REACTION [None]
  - PNEUMONIA [None]
  - DECREASED APPETITE [None]
  - URINARY TRACT INFECTION [None]
  - WEIGHT DECREASED [None]
  - CENTRAL NERVOUS SYSTEM LESION [None]
  - ABDOMINAL DISTENSION [None]
  - OEDEMA [None]
  - INTERVERTEBRAL DISC DISORDER [None]
  - PAIN [None]
  - DRUG HYPERSENSITIVITY [None]
  - VIRAL INFECTION [None]
  - JAUNDICE [None]
  - MOBILITY DECREASED [None]
